FAERS Safety Report 7378989-0 (Version None)
Quarter: 2011Q1

REPORT INFORMATION
  Report Type: 
  Country: None (occurrence: None)
  Receive Date: 20110328
  Receipt Date: 20110315
  Transmission Date: 20110831
  Serious: Yes (Hospitalization, Other)
  Sender: FDA-Public Use
  Company Number: US-ELI_LILLY_AND_COMPANY-US201012001185

PATIENT
  Sex: Female

DRUGS (7)
  1. FORTEO [Suspect]
     Indication: OSTEOPOROSIS
     Dosage: 20 UG, DAILY (1/D)
     Route: 058
     Dates: start: 20101203
  2. PERCOCET [Concomitant]
  3. FORTEO [Suspect]
     Dosage: 20 UG, DAILY (1/D)
  4. FORTEO [Suspect]
     Dosage: 20 UG, DAILY (1/D)
  5. FORTEO [Suspect]
     Dosage: 20 UG, DAILY (1/D)
  6. FORTEO [Suspect]
     Dosage: 20 UG, DAILY (1/D)
  7. OXYCONTIN [Concomitant]
     Dosage: 10 MG, UNK

REACTIONS (10)
  - BACK PAIN [None]
  - INJECTION SITE PAIN [None]
  - MULTIPLE MYELOMA [None]
  - PAIN [None]
  - ASTHENIA [None]
  - DYSPNOEA [None]
  - BLOOD CALCIUM INCREASED [None]
  - MUSCLE SPASMS [None]
  - CONSTIPATION [None]
  - ANAEMIA [None]
